FAERS Safety Report 8181708-1 (Version None)
Quarter: 2012Q1

REPORT INFORMATION
  Report Type: 
  Country: None (occurrence: None)
  Receive Date: 20120302
  Receipt Date: 20111117
  Transmission Date: 20120608
  Serious: No
  Sender: FDA-Public Use
  Company Number: US-AMGEN-USASP2011060680

PATIENT
  Sex: Female
  Weight: 60.8 kg

DRUGS (7)
  1. IRON [Concomitant]
  2. NPLATE [Suspect]
     Indication: THROMBOCYTOPENIA
     Dosage: UNK
     Dates: start: 20100830
  3. FASLODEX [Concomitant]
  4. NPLATE [Suspect]
     Dosage: 60 MUG, QWK
     Dates: start: 20111018
  5. PAXIL [Concomitant]
  6. AROMASIN [Concomitant]
  7. TOPROL-XL [Concomitant]

REACTIONS (1)
  - SKIN LESION [None]
